FAERS Safety Report 7798156-6 (Version None)
Quarter: 2011Q4

REPORT INFORMATION
  Report Type: 
  Country: None (occurrence: None)
  Receive Date: 20111005
  Receipt Date: 20101019
  Transmission Date: 20120403
  Serious: Yes (Hospitalization, Other)
  Sender: FDA-Public Use
  Company Number: US-BAYER-201033929NA

PATIENT
  Age: 20 Year
  Sex: Female
  Weight: 136.5 kg

DRUGS (18)
  1. MONONESSA-28 [Concomitant]
  2. SYNTHROID [Concomitant]
     Dosage: 125 MGC
     Route: 048
  3. XANAX [Concomitant]
     Dosage: UNK, QID
  4. DEPAKOTE [Concomitant]
     Dosage: 500 MG, UNK
     Route: 048
  5. PERCOCET [Concomitant]
     Dosage: UNK, QID
  6. YASMIN [Suspect]
  7. OMEPRAZOLE [Concomitant]
     Dosage: 20 MG, UNK
  8. COMPAZINE [Concomitant]
     Indication: GASTRIC DISORDER
  9. PERCOCET [Concomitant]
     Indication: PAIN
     Dosage: 5/325 MG, Q4HR
  10. BACLOFEN [Concomitant]
     Indication: PAIN
     Dosage: 20 MG, UNK
  11. XANAX [Concomitant]
     Dosage: UNK, TID
  12. SEROQUEL [Concomitant]
     Dosage: 100 MG, UNK
     Route: 048
  13. XANAX [Concomitant]
     Dosage: 1 MG, UNK
     Route: 048
  14. XANAX [Concomitant]
     Dosage: UNK, Q4HR
  15. LEVOTHYROXINE [Concomitant]
     Indication: HYPOTHYROIDISM
     Dosage: 100 ?G, UNK
  16. XANAX [Concomitant]
     Dosage: 0.5 MG, UNK
     Route: 048
  17. YASMIN [Suspect]
     Indication: PREMENSTRUAL SYNDROME
     Dosage: UNK
     Dates: start: 20080101, end: 20080101
  18. TOPAMAX [Concomitant]
     Indication: PAIN
     Dosage: 100 MG, UNK
     Route: 048

REACTIONS (8)
  - GALLBLADDER INJURY [None]
  - HEPATOMEGALY [None]
  - LIVER DISORDER [None]
  - APPENDICITIS [None]
  - BILIARY DYSKINESIA [None]
  - HEPATIC STEATOSIS [None]
  - GASTROINTESTINAL INJURY [None]
  - PANCREATITIS [None]
